FAERS Safety Report 25925557 (Version 1)
Quarter: 2025Q4

REPORT INFORMATION
  Report Type: Spontaneous
  Country: US (occurrence: US)
  Receive Date: 20251015
  Receipt Date: 20251015
  Transmission Date: 20260117
  Serious: Yes (Hospitalization, Other)
  Sender: NOVARTIS
  Company Number: US-002147023-NVSC2025US156947

PATIENT
  Age: 71 Year
  Sex: Female

DRUGS (5)
  1. FEMARA [Suspect]
     Active Substance: LETROZOLE
     Indication: Product used for unknown indication
     Dosage: UNK UNK, QD
     Route: 065
     Dates: start: 20201209
  2. IBRANCE [Suspect]
     Active Substance: PALBOCICLIB
     Indication: Product used for unknown indication
     Dosage: UNK
     Route: 065
     Dates: start: 20201209
  3. IBRANCE [Suspect]
     Active Substance: PALBOCICLIB
     Dosage: UNK
     Route: 065
     Dates: start: 20221021
  4. ELIQUIS [Suspect]
     Active Substance: APIXABAN
     Indication: Product used for unknown indication
     Dosage: UNK
     Route: 065
  5. XGEVA [Suspect]
     Active Substance: DENOSUMAB
     Indication: Product used for unknown indication
     Dosage: UNK
     Route: 065
     Dates: start: 20201215

REACTIONS (20)
  - Gastrointestinal haemorrhage [Unknown]
  - Duodenal ulcer [Unknown]
  - Anaemia [Unknown]
  - Condition aggravated [Unknown]
  - Pulmonary embolism [Unknown]
  - Metabolic function test [Unknown]
  - Tooth injury [Unknown]
  - Lymphadenopathy [Unknown]
  - Rotator cuff syndrome [Unknown]
  - Full blood count abnormal [Unknown]
  - Renal disorder [Unknown]
  - Cough [Unknown]
  - Mental disorder [Unknown]
  - Hypoaesthesia [Unknown]
  - Haemorrhage [Unknown]
  - Incorrect dose administered [Unknown]
  - Lymphadenopathy [Unknown]
  - Arthralgia [Unknown]
  - Haematocrit decreased [Unknown]
  - Troponin increased [Unknown]

NARRATIVE: CASE EVENT DATE: 20241014
